FAERS Safety Report 15193133 (Version 2)
Quarter: 2018Q3

REPORT INFORMATION
  Report Type: Spontaneous
  Country: US (occurrence: US)
  Receive Date: 20180725
  Receipt Date: 20180806
  Transmission Date: 20181010
  Serious: No
  Sender: FDA-Public Use
  Company Number: US-BEH-2018092976

PATIENT
  Age: 49 Year
  Sex: Male

DRUGS (1)
  1. HIZENTRA [Suspect]
     Active Substance: HUMAN IMMUNOGLOBULIN G
     Indication: IMMUNE SYSTEM DISORDER
     Dosage: 40 G, QW
     Route: 058
     Dates: start: 20180626

REACTIONS (3)
  - Abdominal distension [Unknown]
  - Joint instability [Unknown]
  - Fatigue [Unknown]

NARRATIVE: CASE EVENT DATE: 20180714
